FAERS Safety Report 8959706 (Version 3)
Quarter: 2013Q3

REPORT INFORMATION
  Report Type: Report from Study
  Country: ZA (occurrence: ZA)
  Receive Date: 20121212
  Receipt Date: 20130903
  Transmission Date: 20140515
  Serious: Yes (Hospitalization)
  Sender: FDA-Public Use
  Company Number: PHHO2012ZA017647

PATIENT
  Age: 54 Year
  Sex: Male
  Weight: 121.7 kg

DRUGS (12)
  1. ALISKIREN [Suspect]
     Indication: CARDIOVASCULAR DISORDER
     Route: 048
     Dates: start: 20080718, end: 20111220
  2. METFORMIN [Suspect]
     Indication: TYPE 2 DIABETES MELLITUS
     Dosage: 500 MG, BID
     Route: 048
     Dates: start: 20111020
  3. ANTIBIOTICS [Suspect]
  4. FORTZAAR [Concomitant]
     Indication: HYPERTENSION
     Dosage: 1 DF (100/12.5 MG/DAY)
     Route: 048
  5. FUROSEMIDE [Concomitant]
     Indication: HYPERTENSION
     Dosage: 40 MG/DAY
     Route: 048
  6. FUROSEMIDE [Concomitant]
     Indication: OEDEMA
  7. ECOTRIN [Concomitant]
     Indication: CARDIOVASCULAR EVENT PROPHYLAXIS
     Dosage: 81 MG/DAY
     Route: 048
  8. HUMALOG [Concomitant]
     Indication: TYPE 2 DIABETES MELLITUS
     Dosage: 84 U/DAY
     Dates: start: 200511
  9. PURICOS [Concomitant]
     Indication: GOUT
     Dosage: 450 MG/DAY
     Route: 048
     Dates: start: 20120310
  10. CONCOR [Concomitant]
     Indication: HYPERTENSION
     Dosage: 10 MG/DAY
     Route: 048
     Dates: start: 20100115
  11. CADUET [Concomitant]
     Indication: HYPERTENSION
     Dosage: 1 DF (40/10 MG/DAY)
     Route: 048
     Dates: start: 20111016
  12. CADUET [Concomitant]
     Indication: DYSLIPIDAEMIA

REACTIONS (1)
  - Pseudomembranous colitis [Recovered/Resolved]
